FAERS Safety Report 4783716-7 (Version None)
Quarter: 2005Q3

REPORT INFORMATION
  Report Type: 
  Country: None (occurrence: None)
  Receive Date: 20050928
  Receipt Date: 20050915
  Transmission Date: 20060218
  Serious: Yes (Hospitalization)
  Sender: FDA-Public Use
  Company Number: 2005130474

PATIENT
  Sex: Male

DRUGS (4)
  1. XALATAN [Suspect]
     Indication: GLAUCOMA
     Dosage: SINGLE INTERVAL:  EVERYDAY, TOPICAL
     Route: 061
     Dates: start: 20010914
  2. SIMVASTATIN [Concomitant]
  3. SUSTRATE (PROPATYLNITRATE) [Concomitant]
  4. SERTRALINE HCL [Concomitant]

REACTIONS (2)
  - CARDIAC PACEMAKER REPLACEMENT [None]
  - NERVOUSNESS [None]
